FAERS Safety Report 4636661-1 (Version None)
Quarter: 2005Q2

REPORT INFORMATION
  Report Type: 
  Country: None (occurrence: None)
  Receive Date: 20050414
  Receipt Date: 20050331
  Transmission Date: 20051028
  Serious: Yes (Hospitalization)
  Sender: FDA-Public Use
  Company Number: 2005CG00400

PATIENT
  Age: 73 Year
  Sex: Female

DRUGS (4)
  1. TAMOFEN [Suspect]
     Indication: BREAST CANCER
     Dosage: 20 MG QD PO
     Route: 048
     Dates: start: 20030310, end: 20050310
  2. LEXOMIL [Concomitant]
  3. DIFFU K [Concomitant]
  4. DAFALGAN [Concomitant]

REACTIONS (9)
  - GAIT DISTURBANCE [None]
  - HEADACHE [None]
  - HYPERAEMIA [None]
  - INTRACRANIAL PRESSURE INCREASED [None]
  - NEURALGIA [None]
  - PAPILLOEDEMA [None]
  - VISION BLURRED [None]
  - VISUAL ACUITY REDUCED [None]
  - VISUAL DISTURBANCE [None]
